FAERS Safety Report 16490028 (Version 1)
Quarter: 2019Q2

REPORT INFORMATION
  Report Type: Spontaneous
  Country: FR (occurrence: FR)
  Receive Date: 20190628
  Receipt Date: 20190628
  Transmission Date: 20190711
  Serious: Yes (Hospitalization)
  Sender: FDA-Public Use
  Company Number: FR-SUN PHARMACEUTICAL INDUSTRIES LTD-2019RR-211752

PATIENT
  Age: 51 Year
  Sex: Female
  Weight: 102.5 kg

DRUGS (8)
  1. SERTRALINE [Suspect]
     Active Substance: SERTRALINE HYDROCHLORIDE
     Indication: TOXICITY TO VARIOUS AGENTS
     Dosage: 200 MILLIGRAM, UNK
     Route: 048
     Dates: start: 20180902
  2. PARACETAMOL [Suspect]
     Active Substance: ACETAMINOPHEN
     Indication: TOXICITY TO VARIOUS AGENTS
     Dosage: 26 GRAM, UNK
     Route: 048
     Dates: start: 20180902
  3. ALPRAZOLAM. [Suspect]
     Active Substance: ALPRAZOLAM
     Indication: TOXICITY TO VARIOUS AGENTS
     Dosage: 22.5 MILLIGRAM, UNK
     Route: 048
     Dates: start: 20180902
  4. MEPHENESINE [Suspect]
     Active Substance: MEPHENESIN
     Indication: TOXICITY TO VARIOUS AGENTS
     Dosage: 3000 MILLIGRAM, UNK
     Route: 048
     Dates: start: 20180902
  5. TETRAZEPAM [Suspect]
     Active Substance: TETRAZEPAM
     Indication: TOXICITY TO VARIOUS AGENTS
     Dosage: 300 MILLIGRAM, UNK
     Route: 048
     Dates: start: 20180902
  6. ATARAX [Suspect]
     Active Substance: HYDROXYZINE HYDROCHLORIDE
     Indication: TOXICITY TO VARIOUS AGENTS
     Dosage: 1500 MILLIGRAM, UNK
     Route: 048
     Dates: start: 20180902
  7. AUGMENTIN [Suspect]
     Active Substance: AMOXICILLIN\CLAVULANATE POTASSIUM
     Indication: TOXICITY TO VARIOUS AGENTS
     Dosage: 10 DOSAGE FORM, UNK
     Route: 048
     Dates: start: 20180902
  8. TERCIAN [Suspect]
     Active Substance: CYAMEMAZINE
     Indication: TOXICITY TO VARIOUS AGENTS
     Dosage: 1100 MILLIGRAM, UNK
     Route: 048
     Dates: start: 20180902

REACTIONS (2)
  - Toxicity to various agents [Recovered/Resolved]
  - Coma [Recovered/Resolved]

NARRATIVE: CASE EVENT DATE: 20180902
